FAERS Safety Report 6369786-3 (Version None)
Quarter: 2009Q3

REPORT INFORMATION
  Report Type: 
  Country: None (occurrence: None)
  Receive Date: 20090922
  Receipt Date: 20090922
  Transmission Date: 20100115
  Serious: Yes (Hospitalization)
  Sender: FDA-Public Use
  Company Number: None

PATIENT
  Sex: Male
  Weight: 80.9 kg

DRUGS (2)
  1. CETUXIMAB 50 MG BRISTOL-MYERS SQUIBB COMPANY [Suspect]
     Indication: BLADDER CANCER
     Dosage: 400 MG/M2 250 MG/M2 1ST INFUS WEEKLY IV
     Route: 042
     Dates: start: 20090708, end: 20090911
  2. PACLITAXEL [Suspect]
     Indication: BLADDER CANCER
     Dosage: 80-70-60MG/M2 WEEKLY IV
     Route: 042
     Dates: start: 20090708, end: 20090812

REACTIONS (4)
  - ASCITES [None]
  - BODY TEMPERATURE DECREASED [None]
  - FALL [None]
  - JAUNDICE [None]
